FAERS Safety Report 10077051 (Version 1)
Quarter: 2014Q2

REPORT INFORMATION
  Report Type: Report from Study
  Country: US (occurrence: US)
  Receive Date: 20140414
  Receipt Date: 20140414
  Transmission Date: 20141212
  Serious: Yes (Hospitalization)
  Sender: FDA-Public Use
  Company Number: US-ABBVIE-14P-163-1222579-00

PATIENT
  Age: 55 Year
  Sex: Male
  Weight: 59.02 kg

DRUGS (7)
  1. HUMIRA [Suspect]
     Indication: CROHN^S DISEASE
     Dates: start: 2007, end: 2007
  2. HUMIRA [Suspect]
     Dosage: TWO WEEKS AFTER 160 MG DOSE
     Dates: start: 2007, end: 2007
  3. HUMIRA [Suspect]
     Dosage: FOUR WEEKS AFTER 160 MG DOSE
     Dates: start: 2007
  4. PREDNISONE [Suspect]
     Indication: GASTRITIS
     Dosage: TAPERED DOSES STARTING AT 50MG, DOWNWARD
     Dates: start: 201403
  5. PREDNISONE [Suspect]
     Indication: ABDOMINAL PAIN
  6. LEXAPRO [Concomitant]
     Indication: DEPRESSION
  7. LAMICTAL [Concomitant]
     Indication: BIPOLAR DISORDER

REACTIONS (8)
  - Gastritis [Recovered/Resolved]
  - Abdominal pain [Recovered/Resolved]
  - Frequent bowel movements [Recovered/Resolved]
  - Flatulence [Recovered/Resolved]
  - Dehydration [Recovered/Resolved]
  - Insomnia [Not Recovered/Not Resolved]
  - Crohn^s disease [Recovered/Resolved]
  - Stress [Unknown]
